FAERS Safety Report 9421662 (Version 2)
Quarter: 2013Q3

REPORT INFORMATION
  Report Type: Spontaneous
  Country: US (occurrence: US)
  Receive Date: 20130726
  Receipt Date: 20130729
  Transmission Date: 20140515
  Serious: No
  Sender: FDA-Public Use
  Company Number: US-BIOGENIDEC-2013BI068564

PATIENT
  Age: 49 Year
  Sex: Female

DRUGS (11)
  1. TYSABRI [Suspect]
     Indication: MULTIPLE SCLEROSIS
     Route: 042
     Dates: start: 20120626
  2. NORVASC [Concomitant]
  3. HYDROCHLOROTHIAZIDE [Concomitant]
  4. ASPIRIN [Concomitant]
  5. SEROQUIL [Concomitant]
  6. BUSPIRONE [Concomitant]
  7. SYNTHROID [Concomitant]
  8. ZOLOFT [Concomitant]
  9. FLONASE [Concomitant]
  10. CLARITIN [Concomitant]
  11. HYDROCORTISONE CREAM [Concomitant]
     Indication: ECZEMA

REACTIONS (3)
  - Ankle fracture [Not Recovered/Not Resolved]
  - Musculoskeletal disorder [Unknown]
  - Fall [Recovered/Resolved]
